FAERS Safety Report 5626387-X (Version None)
Quarter: 2008Q1

REPORT INFORMATION
  Report Type: 
  Country: None (occurrence: None)
  Receive Date: 20080214
  Receipt Date: 20080130
  Transmission Date: 20080703
  Serious: Yes (Hospitalization)
  Sender: FDA-Public Use
  Company Number: JP-ROCHE-540785

PATIENT
  Age: 13 Year
  Sex: Male
  Weight: 47 kg

DRUGS (7)
  1. TAMIFLU [Suspect]
     Route: 048
     Dates: start: 20070311, end: 20070315
  2. MUCODYNE [Concomitant]
     Route: 048
     Dates: start: 20070311, end: 20070313
  3. MIYA BM [Concomitant]
     Route: 048
     Dates: start: 20070311, end: 20070313
  4. CALONAL [Concomitant]
     Route: 048
  5. AZITHROMYCIN HYDRATE [Concomitant]
  6. CLINDAMYCIN HCL [Concomitant]
  7. METHYLPREDNISOLONE [Concomitant]

REACTIONS (1)
  - STEVENS-JOHNSON SYNDROME [None]
